FAERS Safety Report 5647252-8 (Version None)
Quarter: 2008Q1

REPORT INFORMATION
  Report Type: 
  Country: None (occurrence: None)
  Receive Date: 20080303
  Receipt Date: 20080221
  Transmission Date: 20080703
  Serious: Yes (Other)
  Sender: FDA-Public Use
  Company Number: PHNR2008AU00506

PATIENT
  Age: 34 Year
  Sex: Female

DRUGS (1)
  1. RITALIN [Suspect]
     Indication: DISTURBANCE IN ATTENTION
     Dosage: 10 MG, TID
     Route: 048

REACTIONS (3)
  - DEPRESSED MOOD [None]
  - FEELING ABNORMAL [None]
  - TEARFULNESS [None]
